FAERS Safety Report 22091162 (Version 2)
Quarter: 2023Q2

REPORT INFORMATION
  Report Type: Other
  Country: CN (occurrence: None)
  Receive Date: 20230314
  Receipt Date: 20230513
  Transmission Date: 20230721
  Serious: Yes (Other)
  Sender: FDA-Public Use
  Company Number: CN-ROCHE-3280470

PATIENT
  Age: 58 Year
  Sex: Female
  Weight: 62 kg

DRUGS (25)
  1. ALECTINIB [Suspect]
     Active Substance: ALECTINIB
     Indication: Lung cancer metastatic
     Route: 048
     Dates: start: 20211126
  2. SITAGLIPTIN PHOSPHATE [Concomitant]
     Active Substance: SITAGLIPTIN PHOSPHATE
     Dosage: SYMPTOMATIC TREATMENT OF TYPE 2 DIABETES
     Route: 048
     Dates: start: 2020
  3. HERBALS [Concomitant]
     Active Substance: HERBALS
     Dosage: SYMPTOMATIC TREATMENT OF FATTY LIVER
     Route: 050
     Dates: start: 20221225, end: 20221227
  4. HERBALS [Concomitant]
     Active Substance: HERBALS
     Dosage: SYMPTOMATIC TREATMENT OF FATTY LIVER
     Route: 050
     Dates: start: 20220426, end: 20220429
  5. HERBALS [Concomitant]
     Active Substance: HERBALS
     Dosage: SYMPTOMATIC TREATMENT OF FATTY LIVER
     Route: 050
     Dates: start: 20220518, end: 20220519
  6. HERBALS [Concomitant]
     Active Substance: HERBALS
     Dosage: SYMPTOMATIC TREATMENT OF FATTY LIVER
     Route: 050
     Dates: start: 20220615, end: 20220618
  7. HERBALS [Concomitant]
     Active Substance: HERBALS
     Dosage: SYMPTOMATIC TREATMENT OF FATTY LIVER
     Route: 050
     Dates: start: 20220719, end: 20220721
  8. HERBALS [Concomitant]
     Active Substance: HERBALS
     Dosage: SYMPTOMATIC TREATMENT OF FATTY LIVER
     Route: 050
     Dates: start: 20220802, end: 20220804
  9. HERBALS [Concomitant]
     Active Substance: HERBALS
     Dosage: SYMPTOMATIC TREATMENT OF FATTY LIVER
     Route: 050
     Dates: start: 20220829, end: 20220902
  10. IBUPROFEN [Concomitant]
     Active Substance: IBUPROFEN
     Dosage: SYMPTOMATIC TREATMENT OF VIRAL PNEUMONIA
     Route: 048
     Dates: start: 20221225, end: 20221227
  11. CODEINE PHOSPHATE AND PLATYCODON TABLETS [Concomitant]
     Dosage: SYMPTOMATIC TREATMENT OF VIRAL PNEUMONIA
     Route: 048
     Dates: start: 20221225, end: 20221228
  12. CEFOTAXIME SODIUM [Concomitant]
     Active Substance: CEFOTAXIME SODIUM
     Dosage: SYMPTOMATIC TREATMENT OF VIRAL PNEUMONIA
     Route: 050
     Dates: start: 20221227, end: 20230104
  13. ACETYLCYSTEINE [Concomitant]
     Active Substance: ACETYLCYSTEINE
     Dosage: SYMPTOMATIC TREATMENT OF VIRAL PNEUMONIA
     Route: 048
     Dates: start: 20221217, end: 20230104
  14. MANNATIDE [Concomitant]
     Dosage: INCRASING IMMUNNITY
     Route: 050
     Dates: start: 20221225, end: 20221227
  15. MANNATIDE [Concomitant]
     Dosage: INCRASING IMMUNNITY
     Route: 050
     Dates: start: 20220518, end: 20220521
  16. MANNATIDE [Concomitant]
     Dosage: INCRASING IMMUNNITY
     Route: 050
     Dates: start: 20220927, end: 20220930
  17. AMBROXOL HYDROCHLORIDE [Concomitant]
     Active Substance: AMBROXOL HYDROCHLORIDE
     Dosage: SYMPTOMATIC TREATMENT OF VIRAL PNEUMONIA
     Route: 042
     Dates: start: 20221228, end: 20230104
  18. PAMIDRONATE DISODIUM AND GLUCOSE [Concomitant]
     Dosage: TREATMENT OF BONE METASTASES
     Route: 050
     Dates: start: 20220426, end: 20220427
  19. PAMIDRONATE DISODIUM AND GLUCOSE [Concomitant]
     Dosage: TREATMENT OF BONE METASTASES
     Route: 050
     Dates: start: 20220518, end: 20220519
  20. PAMIDRONATE DISODIUM AND GLUCOSE [Concomitant]
     Dosage: TREATMENT OF BONE METASTASES
     Route: 050
     Dates: start: 20220927, end: 20220928
  21. ATORVASTATIN CALCIUM [Concomitant]
     Active Substance: ATORVASTATIN CALCIUM
     Dosage: SYMPTOMATIC TREATMENT OF FATTY LIVER
     Route: 048
     Dates: start: 20220426, end: 20220429
  22. LIVE COMBINED BIFIDOBACTERIUM, LACTOBACILLUS AND ENTEROCOCCUS [Concomitant]
     Dosage: SYMPTOMATIC TREATMENT OF DIARRHEA
     Route: 048
     Dates: start: 20220426, end: 20220429
  23. CEFDINIR [Concomitant]
     Active Substance: CEFDINIR
     Dosage: SYMPTOMATIC TREATMENT OF URINARY TRACT INFECTION
     Route: 048
     Dates: start: 20220615, end: 20220618
  24. SODIUM BICARBONATE [Concomitant]
     Active Substance: SODIUM BICARBONATE
     Route: 048
     Dates: start: 20220615, end: 20220618
  25. RABEPRAZOLE SODIUM [Concomitant]
     Active Substance: RABEPRAZOLE SODIUM
     Dosage: SYMPTOMATIC TREATMENT OF GASTROINTESTINAL REACTIONS
     Route: 048
     Dates: start: 20220721, end: 20220725

REACTIONS (3)
  - Pneumonia viral [Not Recovered/Not Resolved]
  - Gastrointestinal disorder [Recovered/Resolved]
  - COVID-19 [Recovered/Resolved]

NARRATIVE: CASE EVENT DATE: 20220517
